FAERS Safety Report 24561119 (Version 2)
Quarter: 2024Q4

REPORT INFORMATION
  Report Type: Spontaneous
  Country: US (occurrence: US)
  Receive Date: 20241029
  Receipt Date: 20241108
  Transmission Date: 20250114
  Serious: Yes (Other)
  Sender: AUROBINDO
  Company Number: US-MLMSERVICE-20241010-PI223242-00187-1

PATIENT
  Age: 18 Year
  Sex: Female

DRUGS (6)
  1. KETOCONAZOLE [Suspect]
     Active Substance: KETOCONAZOLE
     Indication: Hyperadrenocorticism
     Dosage: 200 MILLIGRAM, TWO TIMES A DAY
     Route: 048
  2. SPIRONOLACTONE [Concomitant]
     Active Substance: SPIRONOLACTONE
     Indication: Hypokalaemia
     Dosage: STOPPED WITHIN 1 WEEK OF SURGERY
     Route: 065
  3. ATOVAQUONE [Concomitant]
     Active Substance: ATOVAQUONE
     Indication: Antifungal prophylaxis
     Dosage: UNK
     Route: 065
  4. APIXABAN [Concomitant]
     Active Substance: APIXABAN
     Indication: Prophylaxis
     Dosage: UNK
     Route: 065
  5. METYRAPONE [Concomitant]
     Active Substance: METYRAPONE
     Indication: Product used for unknown indication
     Dosage: UNK
     Route: 065
  6. HYDROCORTISONE [Concomitant]
     Active Substance: HYDROCORTISONE
     Indication: Product used for unknown indication
     Dosage: IN THE MORNING AND 10 MG IN THE AFTERNOON WHICH WAS TAPERED DOWN AFTER 2 MONTHS
     Route: 065

REACTIONS (1)
  - Hepatotoxicity [Recovered/Resolved]
